FAERS Safety Report 8554394-6 (Version None)
Quarter: 2012Q3

REPORT INFORMATION
  Report Type: 
  Country: None (occurrence: None)
  Receive Date: 20120731
  Receipt Date: 20120723
  Transmission Date: 20120928
  Serious: Yes (Other)
  Sender: FDA-Public Use
  Company Number: US-009507513-1207USA009913

PATIENT

DRUGS (5)
  1. SIMVASTATIN [Suspect]
     Dosage: 20 MG, QD
     Route: 048
  2. TREDAPTIVE [Suspect]
     Dosage: 1000/20 MG, QD
     Route: 048
  3. COLESEVELAM HYDROCHLORIDE [Suspect]
     Dosage: 625 MG, QD
     Route: 048
  4. ZETIA [Suspect]
     Dosage: 10 MG, QD
     Route: 048
  5. ATORVASTATIN [Suspect]
     Dosage: 20 MG, QD
     Route: 048

REACTIONS (6)
  - INFLUENZA LIKE ILLNESS [None]
  - MUSCULAR WEAKNESS [None]
  - ARTHRALGIA [None]
  - ABDOMINAL DISCOMFORT [None]
  - MUSCLE SPASMS [None]
  - MYALGIA [None]
